FAERS Safety Report 12285810 (Version 4)
Quarter: 2016Q4

REPORT INFORMATION
  Report Type: Spontaneous
  Country: TW (occurrence: TW)
  Receive Date: 20160420
  Receipt Date: 20161207
  Transmission Date: 20170207
  Serious: Yes (Hospitalization, Other)
  Sender: FDA-Public Use
  Company Number: TW-ALEXION PHARMACEUTICALS INC.-A201602661

PATIENT
  Age: 28 Year
  Sex: Male

DRUGS (7)
  1. OXETHAZAINE [Concomitant]
     Active Substance: OXETHAZAINE
     Indication: PRODUCT USED FOR UNKNOWN INDICATION
     Dosage: UNK
     Route: 065
     Dates: start: 20160508, end: 20160510
  2. DEXTROSE. [Concomitant]
     Active Substance: DEXTROSE
     Dosage: UNK
     Route: 065
     Dates: start: 20160503
  3. SOLIRIS [Suspect]
     Active Substance: ECULIZUMAB
     Indication: PAROXYSMAL NOCTURNAL HAEMOGLOBINURIA
     Dosage: 600 MG, QW
     Route: 042
     Dates: start: 20150605
  4. ELECTROLYTE                        /06009701/ [Concomitant]
     Dosage: UNK
     Route: 065
     Dates: start: 20160503
  5. SOLIRIS [Suspect]
     Active Substance: ECULIZUMAB
     Dosage: 900 MG, Q2W
     Route: 042
  6. DEXTROSE. [Concomitant]
     Active Substance: DEXTROSE
     Indication: PRODUCT USED FOR UNKNOWN INDICATION
     Dosage: UNK
     Route: 065
     Dates: start: 20160331, end: 20160404
  7. ELECTROLYTE                        /06009701/ [Concomitant]
     Indication: PRODUCT USED FOR UNKNOWN INDICATION
     Dosage: UNK
     Route: 065
     Dates: start: 20160331, end: 20160404

REACTIONS (15)
  - Platelet count decreased [Recovered/Resolved]
  - Jaundice cholestatic [Recovering/Resolving]
  - Pancreatitis relapsing [Recovered/Resolved]
  - Vomiting [Unknown]
  - Hyperbilirubinaemia [Recovered/Resolved]
  - Diarrhoea [Unknown]
  - Hypokalaemia [Recovering/Resolving]
  - Abdominal pain upper [Unknown]
  - Nausea [Unknown]
  - Papillitis [Unknown]
  - Pancreatitis [Recovered/Resolved]
  - Epigastric discomfort [Unknown]
  - Splenomegaly [Unknown]
  - Cholelithiasis [Recovering/Resolving]
  - Decreased appetite [Unknown]

NARRATIVE: CASE EVENT DATE: 201509
